FAERS Safety Report 9768977 (Version 1)
Quarter: 2013Q4

REPORT INFORMATION
  Report Type: Spontaneous
  Country: GB (occurrence: GB)
  Receive Date: 20131218
  Receipt Date: 20131218
  Transmission Date: 20140711
  Serious: Yes (Life-Threatening, Hospitalization, Disabling, Other)
  Sender: FDA-Public Use
  Company Number: GB-ACCORD-020709

PATIENT
  Age: 27 Year
  Sex: Female

DRUGS (12)
  1. RAMIPRIL [Concomitant]
  2. SANDO K [Concomitant]
  3. LORATADINE [Concomitant]
  4. HYDROXYZINE [Concomitant]
  5. QUETIAPINE FUMARATE [Suspect]
     Indication: PSYCHIATRIC SYMPTOM
     Dosage: NOT STOPPED.
     Route: 048
  6. OMEPRAZOLE [Concomitant]
  7. SPIRONOLACTONE [Concomitant]
  8. SENNA [Concomitant]
  9. FUROSEMIDE [Concomitant]
  10. MEBEVERINE [Concomitant]
  11. WARFARIN [Concomitant]
  12. CYCLIZINE [Concomitant]

REACTIONS (2)
  - Cardiac failure [Not Recovered/Not Resolved]
  - Left ventricular dysfunction [Not Recovered/Not Resolved]
